FAERS Safety Report 11394103 (Version 1)
Quarter: 2015Q3

REPORT INFORMATION
  Report Type: Spontaneous
  Country: US (occurrence: None)
  Receive Date: 20150817
  Receipt Date: 20150817
  Transmission Date: 20151125
  Serious: No
  Sender: FDA-Public Use
  Company Number: None

PATIENT
  Age: 42 Year
  Sex: Female

DRUGS (5)
  1. ESOMEPRA MAG CAP [Concomitant]
  2. AFINITOR [Suspect]
     Active Substance: EVEROLIMUS
     Indication: NEOPLASM MALIGNANT
     Route: 048
     Dates: start: 20150804
  3. VITAMIN D [Concomitant]
     Active Substance: CHOLECALCIFEROL
  4. CLARITHRYMYCIN [Concomitant]
  5. EXEMESTANE 25 MG GREENSTONE [Suspect]
     Active Substance: EXEMESTANE
     Indication: NEOPLASM MALIGNANT
     Route: 048
     Dates: start: 20150804

REACTIONS (1)
  - Myalgia [None]

NARRATIVE: CASE EVENT DATE: 20150804
